FAERS Safety Report 4366088-1 (Version None)
Quarter: 2004Q2

REPORT INFORMATION
  Report Type: 
  Country: None (occurrence: None)
  Receive Date: 20040526
  Receipt Date: 20040526
  Transmission Date: 20050107
  Serious: No
  Sender: FDA-Public Use
  Company Number: None

PATIENT
  Sex: Female

DRUGS (6)
  1. NAMENDA [Suspect]
     Indication: DEMENTIA ALZHEIMER'S TYPE
     Dosage: 10 MG BID
     Dates: end: 20040401
  2. RISPERDAL [Concomitant]
  3. METHOTREXATE [Concomitant]
  4. REMINYL [Concomitant]
  5. LIPITOR [Concomitant]
  6. VIOXX [Concomitant]

REACTIONS (4)
  - ABNORMAL BEHAVIOUR [None]
  - AGITATION [None]
  - CONFUSIONAL STATE [None]
  - RESTLESSNESS [None]
